FAERS Safety Report 4781712-7 (Version None)
Quarter: 2005Q3

REPORT INFORMATION
  Report Type: 
  Country: None (occurrence: None)
  Receive Date: 20050927
  Receipt Date: 20050914
  Transmission Date: 20060218
  Serious: Yes (Death)
  Sender: FDA-Public Use
  Company Number: 2005128728

PATIENT
  Age: 28 Year
  Sex: 0

DRUGS (3)
  1. DIPHENHYDRAMINE HCL [Suspect]
     Indication: INTENTIONAL MISUSE
  2. PARACETAMOL (VICODIN) (PARACETAMOL) [Suspect]
     Indication: INTENTIONAL MISUSE
  3. COCAINE (COCAINE) [Suspect]
     Indication: INTENTIONAL MISUSE

REACTIONS (1)
  - DRUG ABUSER [None]
